FAERS Safety Report 5078979-7 (Version None)
Quarter: 2006Q3

REPORT INFORMATION
  Report Type: 
  Country: None (occurrence: None)
  Receive Date: 20060814
  Receipt Date: 20060810
  Transmission Date: 20061208
  Serious: Yes (Death)
  Sender: FDA-Public Use
  Company Number: MX-BRACCO-BRO-010381

PATIENT
  Age: 65 Year
  Sex: Female

DRUGS (1)
  1. IOPAMIRON [Suspect]
     Route: 013
     Dates: start: 20060801, end: 20060801

REACTIONS (1)
  - CARDIAC ARREST [None]
